FAERS Safety Report 24242062 (Version 1)
Quarter: 2024Q3

REPORT INFORMATION
  Report Type: Spontaneous
  Country: GR (occurrence: GR)
  Receive Date: 20240823
  Receipt Date: 20240823
  Transmission Date: 20241016
  Serious: Yes (Death, Hospitalization, Disabling, Other)
  Sender: ACCORD
  Company Number: GR-EMA-DD-20240801-7482705-061733

PATIENT
  Age: 78 Year
  Sex: Female

DRUGS (1)
  1. METHOTREXATE SODIUM [Suspect]
     Active Substance: METHOTREXATE SODIUM
     Indication: Rheumatoid arthritis

REACTIONS (9)
  - Pancytopenia [Fatal]
  - Pseudomonal bacteraemia [Fatal]
  - Hepatic function abnormal [Not Recovered/Not Resolved]
  - Gingivitis [Not Recovered/Not Resolved]
  - Mouth haemorrhage [Not Recovered/Not Resolved]
  - Toxicity to various agents [Fatal]
  - Cheilitis [Not Recovered/Not Resolved]
  - Septic shock [Fatal]
  - Acute kidney injury [Fatal]
